FAERS Safety Report 7523174-2 (Version None)
Quarter: 2011Q2

REPORT INFORMATION
  Report Type: 
  Country: None (occurrence: None)
  Receive Date: 20110603
  Receipt Date: 20110531
  Transmission Date: 20111010
  Serious: Yes (Other)
  Sender: FDA-Public Use
  Company Number: NL-PFIZER INC-2011077816

PATIENT
  Age: 38 Year
  Sex: Female

DRUGS (3)
  1. ZYPREXA [Concomitant]
     Indication: DEPRESSION
     Dosage: 5 MG, 1X/DAY
     Dates: start: 20110101
  2. TEMAZEPAM [Concomitant]
     Dosage: 10 MG, AS NEEDED
     Dates: start: 20110101
  3. EFFEXOR XR [Suspect]
     Indication: ANXIETY DISORDER
     Dosage: 150 MG, 1X/DAY
     Dates: start: 20110101

REACTIONS (1)
  - INTRA-UTERINE DEATH [None]
